FAERS Safety Report 5468015-2 (Version None)
Quarter: 2007Q3

REPORT INFORMATION
  Report Type: 
  Country: None (occurrence: None)
  Receive Date: 20070926
  Receipt Date: 20070920
  Transmission Date: 20080115
  Serious: Yes (Death)
  Sender: FDA-Public Use
  Company Number: US-ASTRAZENECA-2006UW21589

PATIENT
  Age: 40 Year
  Sex: Female

DRUGS (6)
  1. SEROQUEL [Suspect]
     Indication: DEPRESSION
     Route: 048
     Dates: start: 19960601
  2. CLOZARIL [Concomitant]
     Dates: start: 19940101
  3. HALDOL [Concomitant]
     Dates: start: 19940101, end: 20050101
  4. ZOLOFT [Concomitant]
  5. PAXIL [Concomitant]
  6. CLOZAPINE [Concomitant]

REACTIONS (2)
  - DIABETES MELLITUS [None]
  - HYPERTENSIVE HEART DISEASE [None]
